FAERS Safety Report 9046480 (Version 1)
Quarter: 2013Q1

REPORT INFORMATION
  Report Type: Report from Study
  Country: US (occurrence: US)
  Receive Date: 20130130
  Receipt Date: 20130130
  Transmission Date: 20140127
  Serious: No
  Sender: FDA-Public Use
  Company Number: US-ABBOTT-12P-163-0972814-00

PATIENT
  Sex: Male
  Weight: 122.58 kg

DRUGS (9)
  1. HUMIRA 40 MG/0.8 ML PEN [Suspect]
     Indication: PSORIASIS
     Dates: start: 20061023, end: 201203
  2. HUMIRA 40 MG/0.8 ML PEN [Suspect]
     Indication: PSORIATIC ARTHROPATHY
  3. AMLODIPINE [Concomitant]
     Indication: HYPERTENSION
  4. FENOFIBRATE [Concomitant]
     Indication: HYPERLIPIDAEMIA
  5. TYZANADINE [Concomitant]
     Indication: ARTHRITIS
  6. ALLOPURINOL [Concomitant]
     Indication: GOUT
  7. METHOTREXATE [Concomitant]
     Indication: PSORIATIC ARTHROPATHY
  8. FOLIC ACID [Concomitant]
     Indication: VITAMIN SUPPLEMENTATION
  9. PREDNISONE [Concomitant]
     Indication: PSORIATIC ARTHROPATHY

REACTIONS (1)
  - Tuberculosis [Recovering/Resolving]
